FAERS Safety Report 14683029 (Version 1)
Quarter: 2018Q1

REPORT INFORMATION
  Report Type: Spontaneous
  Country: US (occurrence: US)
  Receive Date: 20180327
  Receipt Date: 20180327
  Transmission Date: 20180509
  Serious: No
  Sender: FDA-Public Use
  Company Number: US-TEVA-2018-US-875142

PATIENT
  Age: 11 Year
  Sex: Male

DRUGS (1)
  1. AZITHROMYCIN ANHYDROUS. [Suspect]
     Active Substance: AZITHROMYCIN ANHYDROUS
     Indication: RESPIRATORY TRACT INFECTION
     Dosage: 200 MG/5 ML
     Dates: start: 20180318

REACTIONS (2)
  - Nasopharyngitis [Unknown]
  - Product storage error [Unknown]

NARRATIVE: CASE EVENT DATE: 20180318
